FAERS Safety Report 8587262-4 (Version None)
Quarter: 2012Q3

REPORT INFORMATION
  Report Type: 
  Country: None (occurrence: None)
  Receive Date: 20120810
  Receipt Date: 20111121
  Transmission Date: 20120928
  Serious: No
  Sender: FDA-Public Use
  Company Number: US-ASTRAZENECA-2011SE57971

PATIENT
  Age: 54 Year
  Sex: Female

DRUGS (3)
  1. CHEMOTHERAPY [Suspect]
     Route: 065
  2. ARIMIDEX [Suspect]
     Route: 048
  3. ARIMIDEX [Suspect]
     Indication: BREAST CANCER
     Route: 048

REACTIONS (4)
  - FALL [None]
  - SKELETAL INJURY [None]
  - BONE PAIN [None]
  - MEMORY IMPAIRMENT [None]
